FAERS Safety Report 6040506-5 (Version None)
Quarter: 2009Q1

REPORT INFORMATION
  Report Type: 
  Country: None (occurrence: None)
  Receive Date: 20090116
  Receipt Date: 20080417
  Transmission Date: 20090719
  Serious: No
  Sender: FDA-Public Use
  Company Number: US-BRISTOL-MYERS SQUIBB COMPANY-14126916

PATIENT
  Age: 50 Year
  Sex: Female

DRUGS (5)
  1. ABILIFY [Suspect]
     Indication: BIPOLAR DISORDER
     Dosage: DOSE REDUCED TO 15 MG
     Route: 048
  2. SEROQUEL [Suspect]
  3. TOPROL-XL [Concomitant]
  4. ADDERALL 10 [Concomitant]
  5. LAMICTAL [Concomitant]

REACTIONS (1)
  - TARDIVE DYSKINESIA [None]
